FAERS Safety Report 8995965 (Version 1)
Quarter: 2013Q1

REPORT INFORMATION
  Report Type: Spontaneous
  Country: US (occurrence: US)
  Receive Date: 20130103
  Receipt Date: 20130103
  Transmission Date: 20140127
  Serious: No
  Sender: FDA-Public Use
  Company Number: US-ABBOTT-12P-163-0944176-00

PATIENT
  Sex: Male

DRUGS (3)
  1. SYNTHROID [Suspect]
     Indication: AUTOIMMUNE THYROIDITIS
  2. SYNTHROID [Suspect]
  3. SYNTHROID [Suspect]

REACTIONS (8)
  - Bipolar disorder [Not Recovered/Not Resolved]
  - Hypothyroidism [Unknown]
  - Muscle twitching [Unknown]
  - Mood altered [Unknown]
  - Goitre [Unknown]
  - Thyroid stimulating immunoglobulin increased [Unknown]
  - Cognitive disorder [Unknown]
  - Mental disorder [Unknown]
